FAERS Safety Report 8450241-1 (Version None)
Quarter: 2012Q2

REPORT INFORMATION
  Report Type: 
  Country: None (occurrence: None)
  Receive Date: 20120620
  Receipt Date: 20120605
  Transmission Date: 20120825
  Serious: Yes (Hospitalization, Other)
  Sender: FDA-Public Use
  Company Number: DE-TEVA-341924GER

PATIENT
  Sex: Female

DRUGS (1)
  1. CLINDAMYCIN [Suspect]
     Indication: OSTEITIS
     Dosage: 1200 MILLIGRAM;
     Route: 048
     Dates: start: 20120605, end: 20120606

REACTIONS (1)
  - FACIAL PARESIS [None]
